FAERS Safety Report 14284435 (Version 5)
Quarter: 2018Q1

REPORT INFORMATION
  Report Type: Spontaneous
  Country: US (occurrence: US)
  Receive Date: 20171214
  Receipt Date: 20180222
  Transmission Date: 20180509
  Serious: Yes (Other)
  Sender: FDA-Public Use
  Company Number: US-JNJFOC-20171209320

PATIENT
  Age: 80 Year
  Sex: Female
  Weight: 68.49 kg

DRUGS (5)
  1. XARELTO [Suspect]
     Active Substance: RIVAROXABAN
     Indication: CEREBROVASCULAR ACCIDENT PROPHYLAXIS
     Route: 048
     Dates: start: 20170911
  2. XARELTO [Suspect]
     Active Substance: RIVAROXABAN
     Indication: ATRIAL FIBRILLATION
     Route: 048
     Dates: start: 20161021, end: 20170903
  3. FENTANYL CITRATE. [Suspect]
     Active Substance: FENTANYL CITRATE
     Indication: PRODUCT USED FOR UNKNOWN INDICATION
     Route: 065
  4. XARELTO [Suspect]
     Active Substance: RIVAROXABAN
     Indication: CEREBROVASCULAR ACCIDENT PROPHYLAXIS
     Route: 048
     Dates: start: 20161021, end: 20170903
  5. XARELTO [Suspect]
     Active Substance: RIVAROXABAN
     Indication: ATRIAL FIBRILLATION
     Route: 048
     Dates: start: 20170911

REACTIONS (16)
  - Fatigue [Recovered/Resolved]
  - Rosacea [Not Recovered/Not Resolved]
  - Cardiac flutter [Unknown]
  - Hepatotoxicity [Not Recovered/Not Resolved]
  - Coagulation time shortened [Unknown]
  - Speech disorder [Recovered/Resolved]
  - Drug interaction [Unknown]
  - Product storage error [Unknown]
  - Surgery [Unknown]
  - Dizziness [Recovered/Resolved]
  - Atrial fibrillation [Unknown]
  - Nausea [Recovered/Resolved]
  - Bradycardia [Unknown]
  - Arthralgia [Recovered/Resolved]
  - Drug ineffective [Unknown]
  - Product label issue [Unknown]

NARRATIVE: CASE EVENT DATE: 201610
